FAERS Safety Report 6807272-4 (Version None)
Quarter: 2010Q2

REPORT INFORMATION
  Report Type: 
  Country: None (occurrence: None)
  Receive Date: 20100629
  Receipt Date: 20080804
  Transmission Date: 20101027
  Serious: Yes (Other)
  Sender: FDA-Public Use
  Company Number: US-PFIZER INC-2008065049

PATIENT
  Sex: Female
  Weight: 90.909 kg

DRUGS (15)
  1. ARTHROTEC [Suspect]
     Indication: ARTHRITIS
     Dosage: 50/200 MG,ONCE DAILY
     Dates: start: 20060101, end: 20080101
  2. ARTHROTEC [Suspect]
     Dosage: 50/200 MG,ONCE DAILY
     Dates: start: 20080701
  3. COUMADIN [Concomitant]
  4. PLAVIX [Concomitant]
  5. ACETYLSALICYLIC ACID [Concomitant]
  6. MULTI-VITAMINS [Concomitant]
  7. CALCIUM CARBONATE [Concomitant]
  8. ASENDIN [Concomitant]
     Dates: start: 19880101
  9. ZOCOR [Concomitant]
  10. ZETIA [Concomitant]
  11. TENORMIN [Concomitant]
  12. ALDACTAZIDE [Concomitant]
  13. PRANDIN [Concomitant]
  14. QUINAGLUTE [Concomitant]
  15. POTASSIUM CHLORIDE [Concomitant]

REACTIONS (1)
  - POSTMENOPAUSAL HAEMORRHAGE [None]
